FAERS Safety Report 13266240 (Version 1)
Quarter: 2017Q1

REPORT INFORMATION
  Report Type: Spontaneous
  Country: US (occurrence: US)
  Receive Date: 20170223
  Receipt Date: 20170223
  Transmission Date: 20170428
  Serious: Yes (Other)
  Sender: FDA-Public Use
  Company Number: US-PRAGMA PHARMACEUTICALS, LLC-2016PRG00877

PATIENT
  Sex: Female

DRUGS (1)
  1. KEFLEX [Suspect]
     Active Substance: CEPHALEXIN

REACTIONS (1)
  - Anaphylactic reaction [Unknown]
